FAERS Safety Report 13475999 (Version 1)
Quarter: 2017Q2

REPORT INFORMATION
  Report Type: Report from Study
  Country: NL (occurrence: NL)
  Receive Date: 20170425
  Receipt Date: 20170425
  Transmission Date: 20170830
  Serious: Yes (Hospitalization, Other)
  Sender: FDA-Public Use
  Company Number: NL-ROCHE-1916035

PATIENT

DRUGS (7)
  1. CAPECITABINE. [Suspect]
     Active Substance: CAPECITABINE
     Dosage: DOSE LEVEL 6?ON DAYS 1-14 EVERY 3 WEEKS
     Route: 048
  2. CAPECITABINE. [Suspect]
     Active Substance: CAPECITABINE
     Indication: NEOPLASM
     Dosage: DOSE LEVEL 1-3?ON DAYS 1-14 EVERY 3 WEEKS
     Route: 048
  3. CAPECITABINE. [Suspect]
     Active Substance: CAPECITABINE
     Dosage: DOSE LEVEL 4-5?ON DAYS 1-14 EVERY 3 WEEKS
     Route: 048
  4. DOCETAXEL. [Suspect]
     Active Substance: DOCETAXEL
     Dosage: DOSE LEVEL 5-6?ON DAY 1
     Route: 042
  5. DOCETAXEL. [Suspect]
     Active Substance: DOCETAXEL
     Indication: NEOPLASM
     Dosage: DOSE LEVEL 1?ON DAY 1
     Route: 042
  6. DOCETAXEL. [Suspect]
     Active Substance: DOCETAXEL
     Dosage: DOSE LEVEL 2?ON DAY 1
     Route: 042
  7. DOCETAXEL. [Suspect]
     Active Substance: DOCETAXEL
     Dosage: DOSE LEVEL 3-4?ON DAY 1
     Route: 042

REACTIONS (12)
  - Asthenia [Unknown]
  - Hepatotoxicity [Unknown]
  - Sepsis [Unknown]
  - Nausea [Unknown]
  - Vomiting [Unknown]
  - Blood bilirubin increased [Unknown]
  - Diarrhoea [Unknown]
  - Mucosal inflammation [Unknown]
  - Neutropenia [Unknown]
  - Palmar-plantar erythrodysaesthesia syndrome [Unknown]
  - Thrombocytopenia [Unknown]
  - Febrile neutropenia [Unknown]
